FAERS Safety Report 21602761 (Version 1)
Quarter: 2022Q4

REPORT INFORMATION
  Report Type: Spontaneous
  Country: CN (occurrence: CN)
  Receive Date: 20221116
  Receipt Date: 20221116
  Transmission Date: 20230112
  Serious: Yes (Other)
  Sender: FDA-Public Use
  Company Number: CN-PFIZER INC-PV202200102504

PATIENT
  Age: 54 Year
  Sex: Male
  Weight: 65 kg

DRUGS (6)
  1. MEDROL [Suspect]
     Active Substance: METHYLPREDNISOLONE
     Indication: Antiinflammatory therapy
     Dosage: 8.000 MG, 2X/DAY
     Route: 048
     Dates: start: 20210714, end: 20210718
  2. OMEPRAZOLE AND SODIUM BICARBONATE [Suspect]
     Active Substance: OMEPRAZOLE\SODIUM BICARBONATE
     Indication: Therapeutic procedure
     Dosage: 1.000 DF, 1X/DAY
     Route: 048
     Dates: start: 20210709, end: 20210715
  3. CEFTAZIDIME [Suspect]
     Active Substance: CEFTAZIDIME
     Indication: Anti-infective therapy
     Dosage: 1.000 G, 2X/DAY
     Route: 041
     Dates: start: 20210709, end: 20210716
  4. LOXOPROFEN SODIUM [Suspect]
     Active Substance: LOXOPROFEN SODIUM
     Indication: Analgesic therapy
     Dosage: 1.000 DF, 2X/DAY
     Route: 048
     Dates: start: 20210713, end: 20210715
  5. FEBUXOSTAT [Suspect]
     Active Substance: FEBUXOSTAT
     Indication: Gout
     Dosage: 1.000 DF, 1X/DAY
     Route: 048
     Dates: start: 20210714, end: 20210718
  6. SODIUM CHLORIDE [Concomitant]
     Active Substance: SODIUM CHLORIDE
     Indication: Vehicle solution use
     Dosage: 100.000 ML, 2X/DAY
     Route: 041
     Dates: start: 20210709, end: 20210716

REACTIONS (1)
  - Liver injury [Unknown]

NARRATIVE: CASE EVENT DATE: 20210716
